FAERS Safety Report 14586831 (Version 1)
Quarter: 2018Q1

REPORT INFORMATION
  Report Type: Report from Study
  Country: US (occurrence: US)
  Receive Date: 20180301
  Receipt Date: 20180301
  Transmission Date: 20180509
  Serious: Yes (Hospitalization, Other)
  Sender: FDA-Public Use
  Company Number: US-OTSUKA-2018_004634

PATIENT
  Sex: Female
  Weight: 90.7 kg

DRUGS (1)
  1. DEXTROMETHORPHAN/QUINIDINE [Suspect]
     Active Substance: DEXTROMETHORPHAN HYDROBROMIDE\QUINIDINE SULFATE
     Indication: AFFECT LABILITY
     Dosage: 1 DF, BID
     Route: 048
     Dates: start: 20160114

REACTIONS (13)
  - Weight decreased [Unknown]
  - Diabetes mellitus [Unknown]
  - Decubitus ulcer [Unknown]
  - Anger [Unknown]
  - Head injury [Unknown]
  - Gait disturbance [Unknown]
  - Arthropod bite [Unknown]
  - Screaming [Unknown]
  - Dysarthria [Unknown]
  - Urinary tract infection [Unknown]
  - Hypertension [Unknown]
  - Myocardial infarction [Unknown]
  - Lethargy [Unknown]

NARRATIVE: CASE EVENT DATE: 2017
